FAERS Safety Report 13121642 (Version 1)
Quarter: 2017Q1

REPORT INFORMATION
  Report Type: Spontaneous
  Country: FR (occurrence: FR)
  Receive Date: 20170117
  Receipt Date: 20170117
  Transmission Date: 20170428
  Serious: Yes (Other)
  Sender: FDA-Public Use
  Company Number: FR-BAYER-2017-006907

PATIENT
  Age: 40 Year
  Sex: Male

DRUGS (1)
  1. IZILOX [Suspect]
     Active Substance: MOXIFLOXACIN HYDROCHLORIDE
     Indication: TOOTH INFECTION
     Dosage: UNK
     Dates: start: 20170104, end: 20170106

REACTIONS (9)
  - Tendonitis [None]
  - Paraesthesia [None]
  - Dysaesthesia [None]
  - Transaminases increased [None]
  - Formication [None]
  - Tremor [None]
  - Tendon pain [None]
  - Paraparesis [None]
  - Off label use [None]
